FAERS Safety Report 18011895 (Version 2)
Quarter: 2020Q4

REPORT INFORMATION
  Report Type: Spontaneous
  Country: UY (occurrence: UY)
  Receive Date: 20200713
  Receipt Date: 20201028
  Transmission Date: 20210113
  Serious: Yes (Disabling, Other)
  Sender: FDA-Public Use
  Company Number: UY-TEVA-2020-UY-1798858

PATIENT
  Age: 67 Year
  Sex: Male

DRUGS (4)
  1. CRANBERRY. [Concomitant]
     Active Substance: CRANBERRY
  2. IBEAR [Suspect]
     Active Substance: FINASTERIDE
     Indication: BENIGN PROSTATIC HYPERPLASIA
     Dosage: STARTED USING IBEAR SINCE ABOUT 15 DAYS
     Route: 065
     Dates: start: 202006
  3. TAMSULOSINE [Concomitant]
     Active Substance: TAMSULOSIN HYDROCHLORIDE
     Dosage: 1 DOSAGE FORMS DAILY; 1 TABLET AT NIGHT
  4. CIPROION [Concomitant]
     Indication: INFECTION
     Dosage: 1000 MILLIGRAM DAILY;

REACTIONS (6)
  - Testicular pain [Recovering/Resolving]
  - Micturition urgency [Recovering/Resolving]
  - Urinary retention [Recovering/Resolving]
  - Renal pain [Recovering/Resolving]
  - Limb discomfort [Recovering/Resolving]
  - Urinary tract obstruction [Recovering/Resolving]

NARRATIVE: CASE EVENT DATE: 202006
